FAERS Safety Report 16110888 (Version 1)
Quarter: 2019Q1

REPORT INFORMATION
  Report Type: Spontaneous
  Country: US (occurrence: US)
  Receive Date: 20190220
  Receipt Date: 20190220
  Transmission Date: 20190418
  Serious: No
  Sender: FDA-Public Use
  Company Number: None

PATIENT

DRUGS (1)
  1. LOSARTAN POTASSIUM. [Suspect]
     Active Substance: LOSARTAN POTASSIUM
     Indication: HYPERTENSION
     Route: 048
     Dates: start: 2019

REACTIONS (6)
  - Lymphoedema [None]
  - Product contamination chemical [None]
  - Malignant melanoma [None]
  - Liposarcoma [None]
  - Manufacturing process control procedure issue [None]
  - Recalled product administered [None]
